FAERS Safety Report 18068005 (Version 4)
Quarter: 2022Q4

REPORT INFORMATION
  Report Type: Report from Study
  Country: JP (occurrence: JP)
  Receive Date: 20200725
  Receipt Date: 20221120
  Transmission Date: 20230112
  Serious: Yes (Hospitalization, Other)
  Sender: FDA-Public Use
  Company Number: JP-ONO-2020JP017052

PATIENT
  Age: 66 Year
  Sex: Male
  Weight: 71 kg

DRUGS (27)
  1. ETELCALCETIDE [Suspect]
     Active Substance: ETELCALCETIDE
     Indication: Hyperparathyroidism secondary
     Dosage: 5 MILLIGRAM, Q56H
     Route: 010
     Dates: start: 20181016, end: 20181224
  2. CINACALCET HYDROCHLORIDE [Concomitant]
     Active Substance: CINACALCET HYDROCHLORIDE
     Dosage: 75 MILLIGRAM, QD
     Route: 048
     Dates: end: 20181013
  3. CINACALCET HYDROCHLORIDE [Concomitant]
     Active Substance: CINACALCET HYDROCHLORIDE
     Dosage: 75 MILLIGRAM, QD
     Route: 048
     Dates: start: 20181225, end: 20190715
  4. DARBEPOETIN ALFA [Concomitant]
     Active Substance: DARBEPOETIN ALFA
     Dosage: 20 MICROGRAM, QWK
     Route: 065
     Dates: end: 20181023
  5. DARBEPOETIN ALFA [Concomitant]
     Active Substance: DARBEPOETIN ALFA
     Dosage: 10 MICROGRAM, QWK
     Route: 065
     Dates: start: 20181030, end: 20190810
  6. DARBEPOETIN ALFA [Concomitant]
     Active Substance: DARBEPOETIN ALFA
     Dosage: 10 MICROGRAM, QWK
     Route: 065
     Dates: start: 20190817
  7. MAXACALCITOL [Concomitant]
     Active Substance: MAXACALCITOL
     Dosage: 5 MICROGRAM, QWK
     Route: 065
     Dates: end: 20190209
  8. MAXACALCITOL [Concomitant]
     Active Substance: MAXACALCITOL
     Dosage: 5 MICROGRAM, Q56H
     Route: 065
     Dates: start: 20190212, end: 20190619
  9. MAXACALCITOL [Concomitant]
     Active Substance: MAXACALCITOL
     Dosage: 5 MICROGRAM, Q84H
     Route: 065
     Dates: start: 20190620, end: 20190819
  10. CALCITRIOL [Concomitant]
     Active Substance: CALCITRIOL
     Dosage: 0.5 MICROGRAM, QWK
     Route: 042
     Dates: start: 20190820, end: 20200309
  11. CALCITRIOL [Concomitant]
     Active Substance: CALCITRIOL
     Dosage: 0.5 MICROGRAM, Q84H
     Route: 042
     Dates: start: 20200310, end: 20200610
  12. CALCITRIOL [Concomitant]
     Active Substance: CALCITRIOL
     Dosage: 0.5 MICROGRAM, Q56H
     Route: 042
     Dates: start: 20200611, end: 20200713
  13. CALCITRIOL [Concomitant]
     Active Substance: CALCITRIOL
     Dosage: 1 MICROGRAM, Q56H
     Route: 042
     Dates: start: 20200714, end: 20200905
  14. CALCITRIOL [Concomitant]
     Active Substance: CALCITRIOL
     Dosage: 1.5 MICROGRAM, Q56H
     Route: 042
     Dates: start: 20200908
  15. EVOCALCET [Concomitant]
     Active Substance: EVOCALCET
     Dosage: 2 MILLIGRAM, QD
     Route: 048
     Dates: start: 20190716, end: 20190728
  16. EVOCALCET [Concomitant]
     Active Substance: EVOCALCET
     Dosage: 3 MILLIGRAM, QD
     Route: 048
     Dates: start: 20190729, end: 20190819
  17. EVOCALCET [Concomitant]
     Active Substance: EVOCALCET
     Dosage: 4 MILLIGRAM, QD
     Route: 048
     Dates: start: 20190820, end: 20190922
  18. EVOCALCET [Concomitant]
     Active Substance: EVOCALCET
     Dosage: 5 MILLIGRAM, QD
     Route: 048
     Dates: start: 20190923, end: 20191014
  19. EVOCALCET [Concomitant]
     Active Substance: EVOCALCET
     Dosage: 7 MILLIGRAM, QD
     Route: 048
     Dates: start: 20191015, end: 20191118
  20. EVOCALCET [Concomitant]
     Active Substance: EVOCALCET
     Dosage: 10 MILLIGRAM, QD
     Route: 048
     Dates: start: 20191119, end: 20191206
  21. EVOCALCET [Concomitant]
     Active Substance: EVOCALCET
     Dosage: 12 MILLIGRAM, QD
     Route: 048
     Dates: start: 20191207
  22. CALTAN [Concomitant]
     Active Substance: CALCIUM CARBONATE
     Dosage: 3000 MILLIGRAM, QD
     Route: 048
     Dates: end: 20190715
  23. CALTAN [Concomitant]
     Active Substance: CALCIUM CARBONATE
     Dosage: 1500 MILLIGRAM, QD
     Route: 048
     Dates: start: 20190716
  24. FOSRENOL [Concomitant]
     Active Substance: LANTHANUM CARBONATE
     Dosage: 1500 MILLIGRAM, QD
     Route: 048
  25. P-tol [Concomitant]
     Dosage: 500 MILLIGRAM, QD
     Route: 048
  26. Fesin [Concomitant]
     Dosage: 40 MILLIGRAM, QWK
     Route: 065
     Dates: start: 20200822, end: 20210130
  27. Fesin [Concomitant]
     Dosage: 40 MILLIGRAM, QWK
     Route: 065
     Dates: start: 20210515

REACTIONS (2)
  - Shunt occlusion [Recovered/Resolved]
  - Renal cancer [Recovering/Resolving]

NARRATIVE: CASE EVENT DATE: 20190822
